FAERS Safety Report 20696337 (Version 1)
Quarter: 2022Q2

REPORT INFORMATION
  Report Type: Spontaneous
  Country: US (occurrence: US)
  Receive Date: 20220411
  Receipt Date: 20220411
  Transmission Date: 20220720
  Serious: No
  Sender: FDA-Public Use
  Company Number: US-PFIZER INC-202101132668

PATIENT
  Age: 61 Year
  Sex: Female
  Weight: 97.506 kg

DRUGS (8)
  1. INLYTA [Suspect]
     Active Substance: AXITINIB
     Indication: Renal cancer
     Dosage: 5 MG, DAILY
     Route: 048
     Dates: start: 201907
  2. KEYTRUDA [Suspect]
     Active Substance: PEMBROLIZUMAB
     Dosage: 100 MG/4ML VIAL
  3. MINERALS\VITAMINS [Concomitant]
     Active Substance: MINERALS\VITAMINS
     Dosage: UNK
  4. TYLENOL EXTRA STRENGTH [Concomitant]
     Active Substance: ACETAMINOPHEN
     Dosage: UNK
  5. TOZINAMERAN [Concomitant]
     Active Substance: TOZINAMERAN
     Indication: COVID-19 immunisation
     Dosage: UNK
     Dates: start: 20210819, end: 20210819
  6. TRAMADOL HCL [Concomitant]
     Active Substance: TRAMADOL HYDROCHLORIDE
     Dosage: 50 MG
  7. LEVOTHYROXINE [Concomitant]
     Active Substance: LEVOTHYROXINE
     Dosage: 25 UG
  8. AQUAPHOR [Concomitant]
     Active Substance: PETROLATUM
     Dosage: 41%

REACTIONS (6)
  - Inflammation [Unknown]
  - Arthritis [Unknown]
  - Pain [Unknown]
  - Gait disturbance [Unknown]
  - Thyroid disorder [Unknown]
  - Malaise [Unknown]
